FAERS Safety Report 13400993 (Version 2)
Quarter: 2017Q2

REPORT INFORMATION
  Report Type: Spontaneous
  Country: US (occurrence: US)
  Receive Date: 20170404
  Receipt Date: 20170412
  Transmission Date: 20170830
  Serious: Yes (Other)
  Sender: FDA-Public Use
  Company Number: US-PFIZER INC-2017140083

PATIENT
  Age: 19 Year
  Sex: Female

DRUGS (1)
  1. EPINEPHRINE. [Suspect]
     Active Substance: EPINEPHRINE
     Indication: INJURY
     Dosage: UNK (AQUEOUS 1:1000 SOLUTION)

REACTIONS (1)
  - Peripheral ischaemia [Recovered/Resolved]
